FAERS Safety Report 4953148-7 (Version None)
Quarter: 2006Q1

REPORT INFORMATION
  Report Type: 
  Country: None (occurrence: None)
  Receive Date: 20060324
  Receipt Date: 20051115
  Transmission Date: 20060701
  Serious: Yes (Hospitalization)
  Sender: FDA-Public Use
  Company Number: US-MERCK-0511USA03037

PATIENT
  Age: 54 Year
  Sex: Female
  Weight: 81 kg

DRUGS (1)
  1. VIOXX [Suspect]
     Indication: BACK PAIN
     Route: 048
     Dates: start: 20030822, end: 20040124

REACTIONS (6)
  - ANXIETY [None]
  - BREAST DISORDER [None]
  - CARDIOVASCULAR DISORDER [None]
  - CEREBROVASCULAR ACCIDENT [None]
  - DEPRESSION [None]
  - EYE DISORDER [None]
